FAERS Safety Report 10543263 (Version 1)
Quarter: 2014Q4

REPORT INFORMATION
  Report Type: Spontaneous
  Country: US (occurrence: None)
  Receive Date: 20141023
  Receipt Date: 20141023
  Transmission Date: 20150529
  Serious: Yes (Other)
  Sender: FDA-Public Use
  Company Number: 2014ST000134

PATIENT
  Age: 65 Year
  Sex: Male
  Weight: 76.2 kg

DRUGS (8)
  1. GLUMETZA [Suspect]
     Active Substance: METFORMIN HYDROCHLORIDE
     Route: 048
  2. ONGLYZA [Suspect]
     Active Substance: SAXAGLIPTIN HYDROCHLORIDE
     Indication: TYPE 2 DIABETES MELLITUS
     Route: 048
  3. ANTIHYPERTENSIVES [Concomitant]
     Active Substance: UNSPECIFIED INGREDIENT
  4. INVOKANA [Suspect]
     Active Substance: CANAGLIFLOZIN
     Indication: TYPE 2 DIABETES MELLITUS
     Route: 048
  5. XYREM [Suspect]
     Active Substance: SODIUM OXYBATE
     Indication: NARCOLEPSY
     Route: 048
     Dates: start: 201312, end: 201402
  6. XYREM [Suspect]
     Active Substance: SODIUM OXYBATE
     Indication: HYPERSOMNIA
     Route: 048
     Dates: start: 201312, end: 201402
  7. GLIMEPIRIDE (GLIMEPIRIDE) [Suspect]
     Active Substance: GLIMEPIRIDE
     Indication: TYPE 2 DIABETES MELLITUS
     Route: 048
  8. GLUMETZA [Suspect]
     Active Substance: METFORMIN HYDROCHLORIDE
     Indication: TYPE 2 DIABETES MELLITUS
     Route: 048

REACTIONS (15)
  - Blood potassium decreased [None]
  - Weight decreased [None]
  - Fatigue [None]
  - Pollakiuria [None]
  - Dizziness postural [None]
  - Poor quality sleep [None]
  - Seizure [None]
  - Blood magnesium abnormal [None]
  - Anxiety [None]
  - Blood glucose increased [None]
  - Joint range of motion decreased [None]
  - Blood glucose decreased [None]
  - Diabetes mellitus inadequate control [None]
  - Prostatic disorder [None]
  - Laceration [None]

NARRATIVE: CASE EVENT DATE: 20140411
